FAERS Safety Report 6153039-2 (Version None)
Quarter: 2009Q2

REPORT INFORMATION
  Report Type: 
  Country: None (occurrence: None)
  Receive Date: 20090413
  Receipt Date: 20090407
  Transmission Date: 20091009
  Serious: No
  Sender: FDA-Public Use
  Company Number: US-B.I. PHARMACEUTICALS,INC./RIDGEFIELD-2009-BP-04336BP

PATIENT
  Sex: Female

DRUGS (5)
  1. ZANTAC 150 [Suspect]
     Indication: GASTROOESOPHAGEAL REFLUX DISEASE
     Route: 048
     Dates: start: 20090404, end: 20090405
  2. NEURONTIN [Concomitant]
     Indication: SPINAL DISORDER
  3. NEURONTIN [Concomitant]
     Indication: NEUROLOGICAL SYMPTOM
  4. PAMELOR [Concomitant]
     Indication: SPINAL DISORDER
  5. PAMELOR [Concomitant]
     Indication: NEUROLOGICAL SYMPTOM

REACTIONS (3)
  - DYSURIA [None]
  - MICTURITION URGENCY [None]
  - URINARY INCONTINENCE [None]
